FAERS Safety Report 8924001 (Version 1)
Quarter: 2012Q4

REPORT INFORMATION
  Report Type: 
  Country: BR (occurrence: BR)
  Receive Date: 20121126
  Receipt Date: 20121126
  Transmission Date: 20130627
  Serious: Yes (Disabling)
  Sender: FDA-Public Use
  Company Number: BR-ELI_LILLY_AND_COMPANY-BR201211004019

PATIENT
  Sex: Female
  Weight: 39 kg

DRUGS (5)
  1. FORTEO [Suspect]
     Indication: OSTEOPOROSIS
     Dosage: 20 ug, qd
     Route: 058
     Dates: start: 200901, end: 201208
  2. B COMPLEX                          /06817001/ [Concomitant]
     Dosage: UNK, qd
     Route: 065
  3. FOLIC ACID [Concomitant]
     Dosage: UNK, unknown
     Route: 065
  4. FLUNARIZINA [Concomitant]
     Dosage: UNK, qd
     Route: 065
  5. OMEPRAZOL [Concomitant]
     Indication: GASTRIC DISORDER
     Dosage: UNK, qd
     Route: 065

REACTIONS (7)
  - Blindness [Not Recovered/Not Resolved]
  - Abasia [Not Recovered/Not Resolved]
  - Vein disorder [Not Recovered/Not Resolved]
  - Tremor [Not Recovered/Not Resolved]
  - Pain [Not Recovered/Not Resolved]
  - Intentional drug misuse [Not Recovered/Not Resolved]
  - Incorrect drug administration duration [Unknown]
